FAERS Safety Report 7415110-4 (Version None)
Quarter: 2011Q2

REPORT INFORMATION
  Report Type: 
  Country: None (occurrence: None)
  Receive Date: 20110414
  Receipt Date: 20110331
  Transmission Date: 20111010
  Serious: Yes (Other)
  Sender: FDA-Public Use
  Company Number: PHHY2011US25074

PATIENT
  Sex: Female
  Weight: 140 kg

DRUGS (3)
  1. RECLAST [Suspect]
     Indication: OSTEOPOROSIS
     Dosage: 5 MG,YEARLY
     Route: 042
     Dates: start: 20110318
  2. VITAMINS [Concomitant]
  3. CALCIUM [Concomitant]

REACTIONS (5)
  - INFLUENZA LIKE ILLNESS [None]
  - MYALGIA [None]
  - HEADACHE [None]
  - PHOTOPHOBIA [None]
  - EYE PAIN [None]
